FAERS Safety Report 15499720 (Version 1)
Quarter: 2018Q4

REPORT INFORMATION
  Report Type: Spontaneous
  Country: US (occurrence: US)
  Receive Date: 20181008
  Receipt Date: 20181008
  Transmission Date: 20190205
  Serious: Yes (Other)
  Sender: FDA-Public Use
  Company Number: None

PATIENT

DRUGS (1)
  1. PROPOFOL. [Suspect]
     Active Substance: PROPOFOL
     Indication: SEDATION
     Route: 040

REACTIONS (3)
  - Product quality issue [None]
  - Drug effect decreased [None]
  - Tonic clonic movements [None]

NARRATIVE: CASE EVENT DATE: 20181002
